FAERS Safety Report 5290859-0 (Version None)
Quarter: 2007Q2

REPORT INFORMATION
  Report Type: 
  Country: None (occurrence: None)
  Receive Date: 20070409
  Receipt Date: 20070330
  Transmission Date: 20071010
  Serious: Yes (Other)
  Sender: FDA-Public Use
  Company Number: JP-PFIZER INC-2007024934

PATIENT

DRUGS (4)
  1. NORVASC [Suspect]
     Route: 048
  2. DIOVAN [Concomitant]
     Route: 048
  3. CYANOCOBALAMIN [Concomitant]
     Route: 048
  4. DEPAS [Concomitant]
     Route: 048

REACTIONS (1)
  - ANOSMIA [None]
